FAERS Safety Report 15459019 (Version 13)
Quarter: 2019Q2

REPORT INFORMATION
  Report Type: Report from Study
  Country: DE (occurrence: DE)
  Receive Date: 20181003
  Receipt Date: 20190429
  Transmission Date: 20190711
  Serious: Yes (Death, Other)
  Sender: FDA-Public Use
  Company Number: PHHY2018DE109176

PATIENT
  Sex: Female
  Weight: 68.4 kg

DRUGS (6)
  1. KISQALI [Suspect]
     Active Substance: RIBOCICLIB
     Dosage: 400 MG, QD
     Route: 048
     Dates: start: 20181019, end: 20190116
  2. KISQALI [Suspect]
     Active Substance: RIBOCICLIB
     Dosage: 200 MG, QD
     Route: 048
     Dates: start: 20190131, end: 20190207
  3. DENOSUMAB [Concomitant]
     Active Substance: DENOSUMAB
     Indication: METASTASES TO BONE
     Dosage: 120 MG, QMO
     Route: 058
     Dates: start: 20180813
  4. KISQALI [Suspect]
     Active Substance: RIBOCICLIB
     Indication: BREAST CANCER METASTATIC
     Dosage: 600 MG, QD
     Route: 048
     Dates: start: 20180814, end: 20180904
  5. KISQALI [Suspect]
     Active Substance: RIBOCICLIB
     Dosage: 600 MG, QD
     Route: 048
     Dates: start: 20180920, end: 20181004
  6. LETROZOLE. [Suspect]
     Active Substance: LETROZOLE
     Indication: BREAST CANCER METASTATIC
     Dosage: 2.5 MG, QD
     Route: 048
     Dates: start: 20180814

REACTIONS (25)
  - Metastases to liver [Fatal]
  - Leukopenia [Recovering/Resolving]
  - Muscle tightness [Not Recovered/Not Resolved]
  - Nausea [Recovering/Resolving]
  - Fluid retention [Not Recovered/Not Resolved]
  - Decreased appetite [Recovering/Resolving]
  - Hepatic failure [Fatal]
  - Breast cancer metastatic [Fatal]
  - Metastases to bone [Fatal]
  - Neutrophil count decreased [Recovered/Resolved]
  - Fatigue [Not Recovered/Not Resolved]
  - Liver function test increased [Fatal]
  - Malignant neoplasm progression [Fatal]
  - Neutropenia [Recovering/Resolving]
  - Nail discolouration [Not Recovered/Not Resolved]
  - Muscle atrophy [Unknown]
  - Neutrophil count decreased [Recovered/Resolved]
  - Abdominal pain upper [Not Recovered/Not Resolved]
  - Asthenia [Not Recovered/Not Resolved]
  - Myalgia [Not Recovered/Not Resolved]
  - Metastases to abdominal wall [Fatal]
  - Glomerular filtration rate decreased [Recovering/Resolving]
  - Musculoskeletal chest pain [Not Recovered/Not Resolved]
  - Pain in extremity [Recovering/Resolving]
  - Increased tendency to bruise [Not Recovered/Not Resolved]

NARRATIVE: CASE EVENT DATE: 20180816
